FAERS Safety Report 5276062-9 (Version None)
Quarter: 2007Q1

REPORT INFORMATION
  Report Type: 
  Country: None (occurrence: None)
  Receive Date: 20070321
  Receipt Date: 20070110
  Transmission Date: 20070707
  Serious: Yes (Hospitalization)
  Sender: FDA-Public Use
  Company Number: 234361K06USA

PATIENT
  Age: 55 Year
  Sex: Female

DRUGS (8)
  1. REBIF [Suspect]
     Indication: MULTIPLE SCLEROSIS
     Dosage: 44 MCG, 3 IN 1 WEEKS, SUBCUTANEOUS
     Route: 058
     Dates: start: 20060502
  2. CELEBREX [Concomitant]
  3. NEXIUM [Concomitant]
  4. ZOCOR [Concomitant]
  5. CELEXA [Concomitant]
  6. LISINOPRIL (LISINOPRIL /00894001/) [Concomitant]
  7. ADVAIR (SERETIDE) [Concomitant]
  8. ALBUTEROL INHALER (SALBUTAMOL /00139501/) [Concomitant]

REACTIONS (4)
  - CHEST PAIN [None]
  - HYPERTENSION [None]
  - HYPOAESTHESIA [None]
  - PARAESTHESIA [None]
